FAERS Safety Report 7054168-1 (Version None)
Quarter: 2010Q4

REPORT INFORMATION
  Report Type: 
  Country: None (occurrence: None)
  Receive Date: 20101020
  Receipt Date: 20101014
  Transmission Date: 20110411
  Serious: Yes (Hospitalization)
  Sender: FDA-Public Use
  Company Number: CHPA2010US16182

PATIENT
  Age: 40 Year
  Sex: Male
  Weight: 68.027 kg

DRUGS (1)
  1. EX-LAX REG STR CHOCOLATED LAX PCS SEN (NCH) [Suspect]
     Indication: ABDOMINAL PAIN LOWER
     Dosage: 1  (^WHOLE BAR^) DF, ONCE/SINGLE
     Route: 048
     Dates: start: 20101014, end: 20101014

REACTIONS (6)
  - APPENDICECTOMY [None]
  - APPENDICITIS PERFORATED [None]
  - DRUG INEFFECTIVE [None]
  - OFF LABEL USE [None]
  - OVERDOSE [None]
  - THERAPEUTIC RESPONSE UNEXPECTED [None]
